FAERS Safety Report 5388390-7 (Version None)
Quarter: 2007Q3

REPORT INFORMATION
  Report Type: 
  Country: None (occurrence: None)
  Receive Date: 20070712
  Receipt Date: 20070702
  Transmission Date: 20080115
  Serious: Yes (Death)
  Sender: FDA-Public Use
  Company Number: 2007RR-08440

PATIENT
  Age: 43 Year
  Sex: Male

DRUGS (2)
  1. SERTRALINE [Suspect]
     Dosage: 50 MG, ORAL
     Route: 048
     Dates: start: 20060701
  2. CLOZARIL [Suspect]
     Indication: SCHIZOPHRENIA
     Dosage: 450 MG, ORAL
     Route: 048
     Dates: start: 20020929

REACTIONS (1)
  - ANTIPSYCHOTIC DRUG LEVEL INCREASED [None]
